FAERS Safety Report 6509655-9 (Version None)
Quarter: 2009Q4

REPORT INFORMATION
  Report Type: 
  Country: None (occurrence: None)
  Receive Date: 20091221
  Receipt Date: 20091221
  Transmission Date: 20100525
  Serious: Yes (Hospitalization)
  Sender: FDA-Public Use
  Company Number: None

PATIENT
  Sex: Female
  Weight: 71 kg

DRUGS (2)
  1. CISPLATIN [Suspect]
     Dosage: 133.5 MG
     Dates: end: 20091119
  2. TAXOL [Suspect]
     Dosage: 106 MG
     Dates: end: 20091125

REACTIONS (5)
  - ASCITES [None]
  - BLOOD CREATINE INCREASED [None]
  - ELECTROCARDIOGRAM ABNORMAL [None]
  - POSTOPERATIVE WOUND INFECTION [None]
  - PULMONARY EMBOLISM [None]
